FAERS Safety Report 19421652 (Version 1)
Quarter: 2021Q2

REPORT INFORMATION
  Report Type: Spontaneous
  Country: CN (occurrence: CN)
  Receive Date: 20210615
  Receipt Date: 20210615
  Transmission Date: 20210717
  Serious: Yes (Hospitalization)
  Sender: FDA-Public Use
  Company Number: CN-BAXTER-2021BAX015687

PATIENT
  Age: 58 Year
  Sex: Female
  Weight: 60 kg

DRUGS (19)
  1. 0.9% SODIUM CHLORIDE INJECTION [Suspect]
     Active Substance: SODIUM CHLORIDE
     Dosage: CYCLOPHOSPHAMIDE FOR INJECTION 1200MG + 0.9% SODIUM CHLORIDE INJECTION 60ML
     Route: 041
     Dates: start: 20210518, end: 20210518
  2. 5% GLUCOSE  INJECTION [Suspect]
     Active Substance: DEXTROSE
     Dosage: DOSE RE?INTRODUCED: YIBILU + 5% GLUCOSE INJECTION
     Route: 041
  3. HANLIKANG [Suspect]
     Active Substance: RITUXIMAB
     Indication: DIFFUSE LARGE B-CELL LYMPHOMA
     Dosage: HANLIKANG 100 MG + 0.9% SODIUM CHLORIDE INJECTION 200ML, INFUSION PUMP 2H, LIGHT?PROOF
     Route: 041
     Dates: start: 20210517, end: 20210517
  4. YIBILU (PIRARUBICIN HYDROCHLORIDE) [Suspect]
     Active Substance: PIRARUBICIN HYDROCHLORIDE
     Indication: DIFFUSE LARGE B-CELL LYMPHOMA
     Dosage: YIBILU 80 MG + 5% GLUCOSE INJECTION 100ML, 50 DROPS/MIN, LIGHT?PROOF
     Route: 041
     Dates: start: 20210518, end: 20210518
  5. VINCRISTINE SULFATE. [Suspect]
     Active Substance: VINCRISTINE SULFATE
     Dosage: DOSE RE?INTRODUCED: VINCRISTINE SULFATE FOR INJECTION + 0.9% SODIUM CHLORIDE INJECTION
     Route: 041
  6. ENDOXAN [Suspect]
     Active Substance: CYCLOPHOSPHAMIDE
     Dosage: DOSE RE?INTRODUCED: CYCLOPHOSPHAMIDE FOR INJECTION + 0.9% SODIUM CHLORIDE INJECTION
     Route: 041
  7. VINCRISTINE SULFATE. [Suspect]
     Active Substance: VINCRISTINE SULFATE
     Indication: DIFFUSE LARGE B-CELL LYMPHOMA
     Dosage: VINCRISTINE SULFATE FOR INJECTION 2MG + 0.9% SODIUM CHLORIDE INJECTION 40ML
     Route: 041
     Dates: start: 20210518, end: 20210518
  8. 0.9% SODIUM CHLORIDE INJECTION [Suspect]
     Active Substance: SODIUM CHLORIDE
     Dosage: VINCRISTINE SULFATE FOR INJECTION 2MG + 0.9% SODIUM CHLORIDE INJECTION 40ML
     Route: 041
     Dates: start: 20210518, end: 20210518
  9. 0.9% SODIUM CHLORIDE INJECTION [Suspect]
     Active Substance: SODIUM CHLORIDE
     Dosage: DOSE RE?INTRODUCED: VINCRISTINE SULFATE FOR INJECTION + 0.9% SODIUM CHLORIDE INJECTION
     Route: 041
  10. HANLIKANG [Suspect]
     Active Substance: RITUXIMAB
     Dosage: DOSE RE?INTRODUCED: HANLIKANG + 0.9% SODIUM CHLORIDE INJECTION
     Route: 041
  11. 5% GLUCOSE  INJECTION [Suspect]
     Active Substance: DEXTROSE
     Indication: MEDICATION DILUTION
     Dosage: YIBILU 80 MG + 5% GLUCOSE INJECTION 100ML, 50 DROPS/MIN, LIGHT?PROOF
     Route: 041
     Dates: start: 20210518, end: 20210518
  12. YIBILU (PIRARUBICIN HYDROCHLORIDE) [Suspect]
     Active Substance: PIRARUBICIN HYDROCHLORIDE
     Dosage: DOSE RE?INTRODUCED: YIBILU + 5% GLUCOSE INJECTION
     Route: 041
  13. ENDOXAN [Suspect]
     Active Substance: CYCLOPHOSPHAMIDE
     Indication: DIFFUSE LARGE B-CELL LYMPHOMA
     Dosage: CYCLOPHOSPHAMIDE FOR INJECTION 1200MG + 0.9% SODIUM CHLORIDE INJECTION 60ML
     Route: 041
     Dates: start: 20210518, end: 20210518
  14. 0.9% SODIUM CHLORIDE INJECTION [Suspect]
     Active Substance: SODIUM CHLORIDE
     Dosage: HANLIKANG 500 MG + 0.9% SODIUM CHLORIDE INJECTION 500ML, INFUSION PUMP 4H, LIGHT?PROOF
     Route: 041
     Dates: start: 20210517, end: 20210517
  15. HANLIKANG [Suspect]
     Active Substance: RITUXIMAB
     Dosage: HANLIKANG 500 MG + 0.9% SODIUM CHLORIDE INJECTION 500ML, INFUSION PUMP 4H, LIGHT?PROOF
     Route: 041
     Dates: start: 20210517, end: 20210517
  16. PREDNISONE ACETATE [Suspect]
     Active Substance: PREDNISONE ACETATE
     Indication: DIFFUSE LARGE B-CELL LYMPHOMA
     Dosage: DOSAGE FORM: TABLET; DAY 1?5
     Route: 048
     Dates: start: 20210518, end: 20210522
  17. 0.9% SODIUM CHLORIDE INJECTION [Suspect]
     Active Substance: SODIUM CHLORIDE
     Indication: MEDICATION DILUTION
     Dosage: HANLIKANG 100 MG + 0.9% SODIUM CHLORIDE INJECTION 200ML, INFUSION PUMP 2H, LIGHT?PROOF
     Route: 041
     Dates: start: 20210517, end: 20210517
  18. 0.9% SODIUM CHLORIDE INJECTION [Suspect]
     Active Substance: SODIUM CHLORIDE
     Dosage: DOSE RE?INTRODUCED: HANLIKANG + 0.9% SODIUM CHLORIDE INJECTION
     Route: 041
  19. 0.9% SODIUM CHLORIDE INJECTION [Suspect]
     Active Substance: SODIUM CHLORIDE
     Dosage: DOSE RE?INTRODUCED: CYCLOPHOSPHAMIDE FOR INJECTION + 0.9% SODIUM CHLORIDE INJECTION
     Route: 041

REACTIONS (6)
  - Platelet count decreased [Recovering/Resolving]
  - Decreased appetite [Unknown]
  - Anaemia [Recovering/Resolving]
  - Agranulocytosis [Recovering/Resolving]
  - Pyrexia [Recovering/Resolving]
  - Productive cough [Unknown]

NARRATIVE: CASE EVENT DATE: 20210526
